FAERS Safety Report 6531222-1 (Version None)
Quarter: 2010Q1

REPORT INFORMATION
  Report Type: 
  Country: None (occurrence: None)
  Receive Date: 20100108
  Receipt Date: 20100104
  Transmission Date: 20100710
  Serious: Yes (Disabling)
  Sender: FDA-Public Use
  Company Number: PHHY2009AR59467

PATIENT
  Sex: Male

DRUGS (7)
  1. DIOVAN [Suspect]
     Indication: BLOOD PRESSURE
     Dosage: 80 MG
  2. DIOVAN [Suspect]
     Dosage: 1 TABLET (320 MG) PER DAY
  3. ATENOLOL [Concomitant]
     Dosage: 50 MG PER DAY
  4. ENALAPRIL [Concomitant]
     Dosage: 10 MG PER DAY
  5. AMLODIPINE [Concomitant]
     Dosage: 10 MG PER DAY
  6. HYDROCHLOROTHIAZIDE [Concomitant]
  7. NAPROXEN [Concomitant]

REACTIONS (4)
  - HYPERTENSION [None]
  - JOINT SWELLING [None]
  - MOBILITY DECREASED [None]
  - OEDEMA PERIPHERAL [None]
